FAERS Safety Report 5870015-5 (Version None)
Quarter: 2008Q3

REPORT INFORMATION
  Report Type: 
  Country: None (occurrence: None)
  Receive Date: 20080904
  Receipt Date: 20080829
  Transmission Date: 20090109
  Serious: Yes (Other)
  Sender: FDA-Public Use
  Company Number: US-ABBOTT-08P-163-0473392-00

PATIENT
  Sex: Female
  Weight: 57.2 kg

DRUGS (9)
  1. HUMIRA [Suspect]
     Indication: CROHN'S DISEASE
     Route: 050
     Dates: start: 20061001, end: 20080801
  2. HUMIRA [Suspect]
     Route: 050
     Dates: start: 20080822
  3. LACTULOSE [Concomitant]
     Indication: CONSTIPATION
     Route: 048
  4. TACROLIMUS [Concomitant]
     Indication: PSORIASIS
     Route: 061
  5. MESALAMINE [Concomitant]
     Indication: DIARRHOEA
     Route: 054
  6. VIGRAN [Concomitant]
     Indication: VITAMIN SUPPLEMENTATION
     Route: 048
  7. FISH OIL [Concomitant]
     Indication: MEDICAL DIET
     Route: 048
  8. IRON [Concomitant]
     Indication: MINERAL SUPPLEMENTATION
     Route: 048
  9. BALSALAZIDE DISODIUM [Concomitant]
     Indication: CROHN'S DISEASE
     Route: 048

REACTIONS (4)
  - ANAEMIA [None]
  - ILEOSTOMY [None]
  - INTESTINAL RESECTION [None]
  - RED BLOOD CELL SEDIMENTATION RATE INCREASED [None]
